FAERS Safety Report 7674538-8 (Version None)
Quarter: 2011Q3

REPORT INFORMATION
  Report Type: 
  Country: None (occurrence: None)
  Receive Date: 20110810
  Receipt Date: 20110801
  Transmission Date: 20111222
  Serious: Yes (Other)
  Sender: FDA-Public Use
  Company Number: PHHY2011JP69949

PATIENT
  Age: 87 Year
  Sex: Male

DRUGS (2)
  1. RISEDRONATE SODIUM [Concomitant]
     Dosage: UNK UKN, UNK
     Dates: start: 20090101
  2. RIVASTIGMINE [Suspect]
     Indication: DEMENTIA ALZHEIMER'S TYPE
     Dosage: 4.5 MG ONE PATCH DAILY
     Route: 062
     Dates: start: 20110726, end: 20110726

REACTIONS (2)
  - CEREBRAL INFARCTION [None]
  - HEMIPLEGIA [None]
